FAERS Safety Report 16517387 (Version 2)
Quarter: 2020Q1

REPORT INFORMATION
  Report Type: Spontaneous
  Country: TW (occurrence: TW)
  Receive Date: 20190702
  Receipt Date: 20200218
  Transmission Date: 20200409
  Serious: Yes (Other)
  Sender: FDA-Public Use
  Company Number: TW-PFIZER INC-2019282214

PATIENT
  Age: 45 Year
  Sex: Male

DRUGS (15)
  1. CLOBETASOL [Suspect]
     Active Substance: CLOBETASOL
     Indication: IMMUNOSUPPRESSION
     Dosage: UNK
     Route: 061
  2. SOLU-MEDROL [Suspect]
     Active Substance: METHYLPREDNISOLONE SODIUM SUCCINATE
     Dosage: 250 MG, UNK
     Route: 040
  3. PREDNISONE. [Suspect]
     Active Substance: PREDNISONE
     Indication: IMMUNOSUPPRESSION
     Dosage: 60 MG, DAILY
     Route: 048
  4. MYCOPHENOLATE MOFETIL. [Suspect]
     Active Substance: MYCOPHENOLATE MOFETIL
     Indication: IMMUNOSUPPRESSION
     Dosage: 2 G, DAILY
  5. TACROLIMUS. [Suspect]
     Active Substance: TACROLIMUS
     Indication: IMMUNOSUPPRESSION
     Dosage: UNK
     Route: 061
  6. SOLU-MEDROL [Suspect]
     Active Substance: METHYLPREDNISOLONE SODIUM SUCCINATE
     Indication: IMMUNOSUPPRESSION
     Dosage: 500 MG, UNK
     Route: 040
  7. SOLU-MEDROL [Suspect]
     Active Substance: METHYLPREDNISOLONE SODIUM SUCCINATE
     Dosage: 125 MG, UNK
     Route: 040
  8. VALGANCICLOVIR. [Concomitant]
     Active Substance: VALGANCICLOVIR
     Indication: ANTIVIRAL PROPHYLAXIS
     Dosage: 900 MG, DAILY
  9. PROGRAF [Suspect]
     Active Substance: TACROLIMUS
     Dosage: MAINTAINED AT A SERUM LEVEL OF 5-8 NG/ML
  10. TRIMETHOPRIM SULFAMETHOXAZOLE [Concomitant]
     Active Substance: SULFAMETHOXAZOLE\TRIMETHOPRIM
     Indication: ANTIFUNGAL PROPHYLAXIS
     Dosage: UNK (400 MG/80 MG)
  11. PROGRAF [Suspect]
     Active Substance: TACROLIMUS
     Indication: IMMUNOSUPPRESSION
     Dosage: 10-5 NG/ML FOR THE FIRST 6 MONTHS
  12. PREDNISONE. [Suspect]
     Active Substance: PREDNISONE
     Dosage: 10 MG, DAILY
  13. GANCICLOVIR SODIUM. [Concomitant]
     Active Substance: GANCICLOVIR SODIUM
     Indication: ANTIVIRAL PROPHYLAXIS
     Dosage: 10 MG/KG, UNK (10 MG/KG IV QD)
     Route: 042
  14. ANTITHYMOCYTE IMMUNOGLOBULIN [Suspect]
     Active Substance: THYMOCYTE IMMUNE GLOBULIN NOS
     Indication: IMMUNOSUPPRESSION
     Dosage: 1.25 MG/KG, DAILY (1.25 MG/KG PER DAY,ADMINISTERED FOR 10 DAYS)
  15. PROGRAF [Suspect]
     Active Substance: TACROLIMUS
     Dosage: 8-10 NG/ML FOR THE NEXT 6 MONTHS

REACTIONS (2)
  - Osteonecrosis [Unknown]
  - Bone infarction [Unknown]
